FAERS Safety Report 17233528 (Version 1)
Quarter: 2020Q1

REPORT INFORMATION
  Report Type: Spontaneous
  Country: GB (occurrence: GB)
  Receive Date: 20200105
  Receipt Date: 20200105
  Transmission Date: 20200409
  Serious: Yes (Other)
  Sender: FDA-Public Use
  Company Number: GB-AMGEN-GBRSP2019217859

PATIENT
  Age: 76 Year
  Sex: Female

DRUGS (3)
  1. LACTULOSE. [Concomitant]
     Active Substance: LACTULOSE
  2. PROLIA [Suspect]
     Active Substance: DENOSUMAB
     Indication: OSTEOPOROSIS
     Dosage: 60 MILLIGRAM, Q6MO
     Route: 058
     Dates: start: 201505
  3. AMILORIDE HCL;HYDROCHLOROTHIAZIDE [Concomitant]

REACTIONS (3)
  - Hypergammaglobulinaemia [Recovered/Resolved]
  - Drug reaction with eosinophilia and systemic symptoms [Recovering/Resolving]
  - Urinary tract infection [Recovered/Resolved]

NARRATIVE: CASE EVENT DATE: 201602
